FAERS Safety Report 21662945 (Version 1)
Quarter: 2022Q4

REPORT INFORMATION
  Report Type: Spontaneous
  Country: CA (occurrence: CA)
  Receive Date: 20221130
  Receipt Date: 20221130
  Transmission Date: 20230113
  Serious: Yes (Other)
  Sender: FDA-Public Use
  Company Number: CA-TEVA-2022-CA-2831696

PATIENT
  Age: 13 Year
  Sex: Male
  Weight: 36 kg

DRUGS (2)
  1. AMOXICILLIN [Suspect]
     Active Substance: AMOXICILLIN
     Indication: Upper respiratory tract infection bacterial
     Dosage: 18 ML DAILY;
     Route: 048
  2. VITAMINS [Concomitant]
     Active Substance: VITAMINS
     Indication: Product used for unknown indication

REACTIONS (2)
  - Emotional distress [Not Recovered/Not Resolved]
  - Reaction to colouring [Not Recovered/Not Resolved]
